FAERS Safety Report 5125834-X (Version None)
Quarter: 2006Q3

REPORT INFORMATION
  Report Type: 
  Country: None (occurrence: None)
  Receive Date: 20060818
  Receipt Date: 20060608
  Transmission Date: 20061208
  Serious: No
  Sender: FDA-Public Use
  Company Number: SPV1-2006-00034

PATIENT
  Age: 79 Year
  Sex: Male
  Weight: 123.4 kg

DRUGS (12)
  1. FOSRENOL [Suspect]
     Indication: HYPERPHOSPHATAEMIA
     Dosage: 1000 MG, 3X/DAY:TID
  2. INSULIN (INSULIN) [Concomitant]
  3. PLAVIX [Concomitant]
  4. LIPITOR [Concomitant]
  5. AVANDIA [Concomitant]
  6. NEURONTIN [Concomitant]
  7. NEPRO (FATS NOS, CARBOHYDRATES NOS, MINERALS NOS, VITAMINS NOS, PROTEI [Concomitant]
  8. LEVOXYL [Concomitant]
  9. ASPIRIN [Concomitant]
  10. MIDODRINE [Concomitant]
  11. LEXAPRO [Concomitant]
  12. DARVOCET /00758701/ (DEXTROPROPOXYPHENE NAPSILATE) [Concomitant]

REACTIONS (1)
  - TOOTH DISORDER [None]
